FAERS Safety Report 4492508-8 (Version None)
Quarter: 2004Q4

REPORT INFORMATION
  Report Type: 
  Country: None (occurrence: None)
  Receive Date: 20041029
  Receipt Date: 20041021
  Transmission Date: 20050328
  Serious: No
  Sender: FDA-Public Use
  Company Number: 2004UW21897

PATIENT
  Age: 32 Year
  Sex: Male

DRUGS (1)
  1. LOSEC [Suspect]
     Dosage: 1 DF PO
     Route: 048

REACTIONS (4)
  - AGITATION [None]
  - CONFUSIONAL STATE [None]
  - DELUSION [None]
  - PSYCHOTIC DISORDER [None]
